FAERS Safety Report 18506992 (Version 1)
Quarter: 2020Q4

REPORT INFORMATION
  Report Type: Spontaneous
  Country: US (occurrence: US)
  Receive Date: 20201113
  Receipt Date: 20201113
  Transmission Date: 20210114
  Serious: Yes (Hospitalization)
  Sender: FDA-Public Use
  Company Number: None

PATIENT
  Age: 62 Year
  Sex: Female

DRUGS (23)
  1. METHYLPRED [Concomitant]
     Active Substance: METHYLPREDNISOLONE
  2. PIOGLITAZONE. [Concomitant]
     Active Substance: PIOGLITAZONE
  3. SUCRALFATE. [Concomitant]
     Active Substance: SUCRALFATE
  4. CARVEDILOL. [Concomitant]
     Active Substance: CARVEDILOL
  5. POT CHLORIDE ER [Concomitant]
  6. THEOPHYLLINE [Concomitant]
     Active Substance: THEOPHYLLINE ANHYDROUS
  7. ENALAPRIL [Concomitant]
     Active Substance: ENALAPRIL
  8. SERTRALINE [Concomitant]
     Active Substance: SERTRALINE HYDROCHLORIDE
  9. VITAMIN D [Concomitant]
     Active Substance: VITAMIN D NOS
  10. BASAGLAR [Concomitant]
     Active Substance: INSULIN GLARGINE
  11. FLUCONAZOLE. [Concomitant]
     Active Substance: FLUCONAZOLE
  12. AMIODARONE [Concomitant]
     Active Substance: AMIODARONE
  13. FAMOTIDINE. [Concomitant]
     Active Substance: FAMOTIDINE
  14. FUROSEMIDE. [Concomitant]
     Active Substance: FUROSEMIDE
  15. ROSUVASTATIN. [Concomitant]
     Active Substance: ROSUVASTATIN
  16. SILDENAFIL 20MG TAB [Suspect]
     Active Substance: SILDENAFIL
     Indication: PULMONARY HYPERTENSION
     Route: 048
     Dates: start: 20181204
  17. ANORO ELLIPT [Concomitant]
  18. ELIQUIS [Concomitant]
     Active Substance: APIXABAN
  19. METFORMIN [Concomitant]
     Active Substance: METFORMIN HYDROCHLORIDE
  20. OXYCODONE [Concomitant]
     Active Substance: OXYCODONE
  21. DOXYCYCL HYC [Concomitant]
  22. OMEPRAZOLE. [Concomitant]
     Active Substance: OMEPRAZOLE
  23. NOVOLOG [Concomitant]
     Active Substance: INSULIN ASPART

REACTIONS (2)
  - Large intestinal polypectomy [None]
  - X-ray with contrast upper gastrointestinal tract [None]

NARRATIVE: CASE EVENT DATE: 202010
